FAERS Safety Report 16860837 (Version 1)
Quarter: 2019Q3

REPORT INFORMATION
  Report Type: Spontaneous
  Country: GB (occurrence: GB)
  Receive Date: 20190927
  Receipt Date: 20190927
  Transmission Date: 20191005
  Serious: Yes (Other)
  Sender: FDA-Public Use
  Company Number: GB-TEVA-2019-GB-1113582

PATIENT
  Age: 63 Year
  Sex: Male
  Weight: 80 kg

DRUGS (5)
  1. ATORVASTATIN [Concomitant]
     Active Substance: ATORVASTATIN
     Dosage: 1 DOSAGE FORMS 1 DAYS
     Dates: start: 20190412
  2. COCODAMOL [Concomitant]
     Active Substance: ACETAMINOPHEN\CODEINE PHOSPHATE
     Dosage: TAKE 1 OR 2 UPTO 4 TIMES/DAY
     Dates: start: 20190814, end: 20190821
  3. LANSOPRAZOLE. [Concomitant]
     Active Substance: LANSOPRAZOLE
     Dosage: 1 DOSAGE FORMS 1 DAYS
     Dates: start: 20190703, end: 20190717
  4. BETAMETHASONE VALERATE. [Concomitant]
     Active Substance: BETAMETHASONE VALERATE
     Dosage: 1-2 WEEKS THEN STOP. 2 DOSAGE FORMS 1 DAYS
     Dates: start: 20190814, end: 20190821
  5. NAPROXEN. [Suspect]
     Active Substance: NAPROXEN
     Dosage: 500MG 1 DAYS
     Route: 065
     Dates: start: 20190703, end: 20190717

REACTIONS (1)
  - Rash generalised [Recovered/Resolved]
